FAERS Safety Report 19238705 (Version 3)
Quarter: 2022Q4

REPORT INFORMATION
  Report Type: Spontaneous
  Country: US (occurrence: US)
  Receive Date: 20210510
  Receipt Date: 20221014
  Transmission Date: 20230113
  Serious: No
  Sender: FDA-Public Use
  Company Number: US-PFIZER INC-2021404340

PATIENT
  Age: 85 Year
  Sex: Female

DRUGS (1)
  1. EUCRISA [Suspect]
     Active Substance: CRISABOROLE
     Dosage: SMALL AMT APPLY TO EYELIDS AND NECK TWO TIMES DAILY PRN
     Route: 061

REACTIONS (1)
  - Therapeutic product effect incomplete [Unknown]
